FAERS Safety Report 8370701-1 (Version None)
Quarter: 2012Q2

REPORT INFORMATION
  Report Type: 
  Country: None (occurrence: None)
  Receive Date: 20120518
  Receipt Date: 20120515
  Transmission Date: 20120825
  Serious: Yes (Life-Threatening)
  Sender: FDA-Public Use
  Company Number: CZ-B.I. PHARMACEUTICALS,INC./RIDGEFIELD-2012-AP-00413AP

PATIENT
  Sex: Male
  Weight: 81 kg

DRUGS (5)
  1. PRENESSA [Concomitant]
     Indication: ESSENTIAL HYPERTENSION
     Dosage: 8 MG
     Dates: start: 20080101
  2. PRADAXA [Suspect]
     Indication: ATRIAL FIBRILLATION
     Dosage: 300 MG
     Route: 048
     Dates: start: 20120305, end: 20120413
  3. METOPROLOL SUCCINATE [Concomitant]
     Indication: ESSENTIAL HYPERTENSION
     Dosage: 25 MG
     Dates: start: 20100701
  4. METOPROLOL SUCCINATE [Concomitant]
     Indication: ATRIAL FIBRILLATION
  5. LUSOPRESS [Concomitant]
     Indication: ESSENTIAL HYPERTENSION
     Dosage: 20 MG
     Dates: start: 20080101

REACTIONS (4)
  - MELAENA [None]
  - OEDEMA PERIPHERAL [None]
  - EPISTAXIS [None]
  - DYSPEPSIA [None]
